FAERS Safety Report 7987506-3 (Version None)
Quarter: 2011Q4

REPORT INFORMATION
  Report Type: 
  Country: None (occurrence: None)
  Receive Date: 20111216
  Receipt Date: 20111205
  Transmission Date: 20120403
  Serious: Yes (Death)
  Sender: FDA-Public Use
  Company Number: PHHY2011US109270

PATIENT
  Age: 50 Year
  Sex: Female

DRUGS (3)
  1. METOPROLOL TARTRATE [Suspect]
  2. ALPRAZOLAM [Suspect]
  3. VENLAFAXINE [Suspect]

REACTIONS (1)
  - SUICIDAL IDEATION [None]
